FAERS Safety Report 7012053-5 (Version None)
Quarter: 2010Q3

REPORT INFORMATION
  Report Type: 
  Country: None (occurrence: None)
  Receive Date: 20100924
  Receipt Date: 20100913
  Transmission Date: 20110219
  Serious: Yes (Hospitalization)
  Sender: FDA-Public Use
  Company Number: DE-ELI_LILLY_AND_COMPANY-DE201008002069

PATIENT
  Sex: Male

DRUGS (2)
  1. OLANZAPINE LONG-ACTING IM [Suspect]
     Indication: SCHIZOPHRENIA
     Dosage: 300 MG, EVERY 4 WEEKS
     Route: 030
     Dates: start: 20090626
  2. OLANZAPINE LONG-ACTING IM [Suspect]
     Dosage: 405 MG, EVERY 4 WEEKS
     Route: 030
     Dates: start: 20100101

REACTIONS (7)
  - DELIRIUM [None]
  - DYSARTHRIA [None]
  - MIOSIS [None]
  - PANIC ATTACK [None]
  - SENSATION OF FOREIGN BODY [None]
  - SOMNOLENCE [None]
  - STUPOR [None]
